FAERS Safety Report 6004322-2 (Version None)
Quarter: 2008Q4

REPORT INFORMATION
  Report Type: 
  Country: None (occurrence: None)
  Receive Date: 20081216
  Receipt Date: 20081209
  Transmission Date: 20090506
  Serious: Yes (Hospitalization)
  Sender: FDA-Public Use
  Company Number: US-ABBOTT-08P-163-0492109-00

PATIENT
  Sex: Female
  Weight: 72.64 kg

DRUGS (8)
  1. DEPAKOTE ER [Suspect]
     Indication: BIPOLAR DISORDER
     Route: 048
     Dates: start: 20080401
  2. LAMOTRIGINE [Concomitant]
     Indication: BIPOLAR DISORDER
     Dosage: 150 MG AT BEDTIME
     Route: 048
  3. NADOLOL [Concomitant]
     Indication: HYPERTENSION
     Dosage: ONCE DAILY
     Route: 048
  4. RABEPRAZOLE SODIUM [Concomitant]
     Indication: GASTRITIS
     Dosage: ONCE DAILY
     Route: 048
  5. TEMAZEPAM [Concomitant]
     Indication: INSOMNIA
     Dosage: 30 MG DAILY, AS NEEDED
     Route: 048
  6. LORAZEPAM [Concomitant]
     Indication: ANXIETY
     Route: 048
  7. TYLOX [Concomitant]
     Indication: BACK PAIN
     Route: 048
  8. TYLOX [Concomitant]
     Indication: ARTHRALGIA

REACTIONS (3)
  - ELECTROCARDIOGRAM T WAVE ABNORMAL [None]
  - HYPERHIDROSIS [None]
  - SYNCOPE [None]
